FAERS Safety Report 7054233-9 (Version None)
Quarter: 2010Q4

REPORT INFORMATION
  Report Type: 
  Country: None (occurrence: None)
  Receive Date: 20101020
  Receipt Date: 20101012
  Transmission Date: 20110411
  Serious: Yes (Other)
  Sender: FDA-Public Use
  Company Number: NL-PFIZER INC-2010129629

PATIENT
  Age: 73 Year
  Sex: Male
  Weight: 70 kg

DRUGS (3)
  1. LIPITOR [Suspect]
     Dosage: 20 MG, 1X/DAY
     Dates: start: 20060524
  2. PERINDOPRIL [Suspect]
     Indication: ESSENTIAL HYPERTENSION
     Dosage: 4 MG, 1X/DAY
     Dates: start: 20100114
  3. ACETYLSALICYLIC ACID [Concomitant]
     Dosage: 80 MG, 1X/DAY
     Dates: start: 20060524

REACTIONS (2)
  - ERYTHROPENIA [None]
  - LEUKOPENIA [None]
